FAERS Safety Report 7426425-8 (Version None)
Quarter: 2011Q2

REPORT INFORMATION
  Report Type: 
  Country: None (occurrence: None)
  Receive Date: 20110420
  Receipt Date: 20110411
  Transmission Date: 20111010
  Serious: Yes (Hospitalization)
  Sender: FDA-Public Use
  Company Number: US-ASTRAZENECA-2010SE42253

PATIENT
  Age: 61 Year
  Sex: Female

DRUGS (43)
  1. CRESTOR [Suspect]
     Route: 048
  2. AUGMENTIN [Concomitant]
  3. BETADINE [Concomitant]
  4. COMPAZINE [Concomitant]
  5. COZAAR [Concomitant]
  6. EYTHROMYCIN BASE [Concomitant]
  7. LODINE [Concomitant]
  8. PENICILLIN [Concomitant]
  9. PROPOLSIDE [Concomitant]
  10. AMOXICILLIN [Concomitant]
  11. NITROGLYCERIN [Concomitant]
  12. PERCOCEL [Concomitant]
  13. TORADOL [Concomitant]
  14. DIOVAN [Concomitant]
  15. TAGAMENT [Concomitant]
  16. AMBESOL [Concomitant]
  17. ADVIL LIQUI-GELS [Concomitant]
  18. AXID [Concomitant]
  19. DARVON [Concomitant]
  20. DOLOBID [Concomitant]
  21. HYDROCHLOROTHIAZIDE [Concomitant]
  22. MOTRIN [Concomitant]
  23. PREVACID [Concomitant]
  24. TALWIN [Concomitant]
  25. TENORMIN [Suspect]
     Route: 065
  26. ASCIPTIN [Concomitant]
  27. IBUPROFEN AND ALL IB PRODUCTS [Concomitant]
  28. LEVAQUIN [Concomitant]
  29. PROVERA INJECTIONS [Concomitant]
  30. PRILOSEC [Suspect]
     Route: 048
  31. CODEINE AND ALL CODEINE DERIVATIVES [Concomitant]
  32. DAYPRO [Concomitant]
  33. FEDENE [Concomitant]
  34. VASOTEC [Concomitant]
  35. NEXIUM [Suspect]
     Route: 048
  36. APPLES/APPLE CIDER [Concomitant]
  37. PEPCID [Concomitant]
  38. PERCODAN-DEMI [Concomitant]
  39. ZIAC (GENERIC) [Concomitant]
  40. ALCOHOL [Concomitant]
  41. DARVOCET [Concomitant]
  42. DEMEROL [Concomitant]
  43. ULTHRAM [Concomitant]

REACTIONS (9)
  - KNEE OPERATION [None]
  - DRUG EFFECT DECREASED [None]
  - MUSCLE SPASMS [None]
  - JOINT INJURY [None]
  - OSTEONECROSIS OF JAW [None]
  - GASTROOESOPHAGEAL REFLUX DISEASE [None]
  - NAUSEA [None]
  - TOOTH EXTRACTION [None]
  - HEADACHE [None]
